FAERS Safety Report 8604249 (Version 2)
Quarter: 2012Q4

REPORT INFORMATION
  Report Type: 
  Country: US (occurrence: US)
  Receive Date: 20120608
  Receipt Date: 20121015
  Transmission Date: 20130627
  Serious: Yes (Other)
  Sender: FDA-Public Use
  Company Number: US-BAYER-2012-056440

PATIENT
  Age: 38 Year
  Sex: Female
  Weight: 53.97 kg

DRUGS (17)
  1. YASMIN [Suspect]
     Indication: CONTRACEPTION
     Dosage: UNK
     Dates: start: 200605, end: 200803
  2. ALPRAZOLAM [Concomitant]
     Indication: ANXIETY DISORDER
     Dosage: 1 mg, PRN
     Route: 048
  3. CARISOPRODOL [Concomitant]
     Dosage: 350 mg, UNK
     Route: 048
  4. RANITIDINE [Concomitant]
     Dosage: 300 mg, UNK
     Route: 048
  5. HYDROCODONE W/APAP [Concomitant]
     Dosage: 7.5/500 mg, UNK
     Route: 048
  6. HYDROCODONE W/APAP [Concomitant]
     Dosage: 5/500 mg, UNK
     Route: 048
  7. DOXYCYCLINE [Concomitant]
     Dosage: 100 mg, UNK
     Route: 048
  8. SYMPATHOMIMETICS [Concomitant]
     Route: 048
  9. NEXIUM [Concomitant]
     Dosage: 40 mg, UNK
     Route: 048
  10. CIPROFLOXACIN [Concomitant]
     Dosage: 500 mg, UNK
     Route: 048
  11. IPRATROPIUM [Concomitant]
     Dosage: 0.02 %, UNK
  12. ALBUTEROL NEBULIZER [Concomitant]
     Dosage: 0.083 %, UNK
  13. CITRATE OF MAGNESIUM [Concomitant]
     Dosage: ? bottle
     Route: 048
  14. DEXAMETHASONE [Concomitant]
     Dosage: 4 mg, UNK
     Route: 030
  15. TORADOL [Concomitant]
     Dosage: 15 mg, UNK
     Route: 030
  16. LINCOCIN [Concomitant]
     Dosage: 300 mg, UNK
     Route: 030
  17. PLAVIX [Concomitant]
     Dosage: 75 mg, daily

REACTIONS (9)
  - Thrombosis [None]
  - Thrombophlebitis superficial [None]
  - Injury [None]
  - Depression [None]
  - Emotional distress [None]
  - Fear of death [None]
  - Nervousness [None]
  - Pain in extremity [None]
  - Mobility decreased [None]
